FAERS Safety Report 6123187-1 (Version None)
Quarter: 2009Q1

REPORT INFORMATION
  Report Type: 
  Country: None (occurrence: None)
  Receive Date: 20090318
  Receipt Date: 20090313
  Transmission Date: 20090719
  Serious: Yes (Other)
  Sender: FDA-Public Use
  Company Number: US-JNJFOC-20090303906

PATIENT
  Sex: Female
  Weight: 61.24 kg

DRUGS (4)
  1. ORTHO TRI-CYCLEN [Suspect]
     Indication: CONTRACEPTION
     Route: 048
  2. SYNTHROID [Concomitant]
     Indication: THYROIDECTOMY
     Route: 048
  3. CYTOMEL [Concomitant]
     Indication: THYROIDECTOMY
     Route: 048
  4. SPIRONOLACTONE [Concomitant]
     Indication: ACNE
     Route: 048

REACTIONS (2)
  - OBSESSIVE-COMPULSIVE DISORDER [None]
  - PANIC ATTACK [None]
